FAERS Safety Report 7235874-2 (Version None)
Quarter: 2011Q1

REPORT INFORMATION
  Report Type: 
  Country: None (occurrence: None)
  Receive Date: 20110120
  Receipt Date: 20110113
  Transmission Date: 20110831
  Serious: Yes (Life-Threatening)
  Sender: FDA-Public Use
  Company Number: KR-ROCHE-753220

PATIENT
  Age: 40 Year
  Sex: Male

DRUGS (1)
  1. OSELTAMIVIR [Suspect]
     Indication: H1N1 INFLUENZA
     Dosage: DRUG REPORTED AS OSELTAMIVIR PHOSPHATE.
     Route: 048
     Dates: start: 20110103

REACTIONS (1)
  - LOSS OF CONSCIOUSNESS [None]
